FAERS Safety Report 19413140 (Version 1)
Quarter: 2021Q2

REPORT INFORMATION
  Report Type: Spontaneous
  Country: US (occurrence: US)
  Receive Date: 20210614
  Receipt Date: 20210614
  Transmission Date: 20210717
  Serious: Yes (Hospitalization)
  Sender: FDA-Public Use
  Company Number: US-OTSUKA-2021_019745

PATIENT
  Age: 93 Year
  Sex: Female

DRUGS (2)
  1. SAMSCA [Suspect]
     Active Substance: TOLVAPTAN
     Indication: HYPONATRAEMIA
  2. SAMSCA [Suspect]
     Active Substance: TOLVAPTAN
     Indication: BLOOD OSMOLARITY DECREASED
     Dosage: 15 MG, UNK
     Route: 065
     Dates: start: 20200817

REACTIONS (2)
  - Blood sodium decreased [Unknown]
  - Product use in unapproved indication [Unknown]

NARRATIVE: CASE EVENT DATE: 20200817
